FAERS Safety Report 8051252-0 (Version None)
Quarter: 2012Q1

REPORT INFORMATION
  Report Type: 
  Country: None (occurrence: None)
  Receive Date: 20120117
  Receipt Date: 20120113
  Transmission Date: 20120608
  Serious: Yes (Life-Threatening, Hospitalization)
  Sender: FDA-Public Use
  Company Number: FR-ASTRAZENECA-2012SE00687

PATIENT
  Age: 15980 Day
  Sex: Female
  Weight: 75 kg

DRUGS (3)
  1. OXAZEPAM [Concomitant]
     Indication: ANXIETY
     Dosage: 50 MG THREE TO FOUR TIMES PER DAY
     Route: 048
     Dates: start: 20100101
  2. QUETIAPINE FUMARATE [Suspect]
     Route: 048
     Dates: start: 20111231
  3. QUETIAPINE FUMARATE [Suspect]
     Indication: BIPOLAR I DISORDER
     Route: 048
     Dates: start: 20111201, end: 20111229

REACTIONS (4)
  - PNEUMONIA ASPIRATION [None]
  - SUICIDE ATTEMPT [None]
  - COMA [None]
  - TOXICITY TO VARIOUS AGENTS [None]
